FAERS Safety Report 6750512-0 (Version None)
Quarter: 2010Q2

REPORT INFORMATION
  Report Type: 
  Country: None (occurrence: None)
  Receive Date: 20100527
  Receipt Date: 20100519
  Transmission Date: 20101027
  Serious: Yes (Life-Threatening, Hospitalization)
  Sender: FDA-Public Use
  Company Number: 009356

PATIENT
  Age: 61 Year
  Sex: Male
  Weight: 65 kg

DRUGS (8)
  1. PLETAL [Suspect]
     Indication: CEREBRAL INFARCTION
     Dosage: 100 MG, BID; ORAL
     Route: 048
     Dates: start: 20091117, end: 20100402
  2. ENALAPRIL MALEATE [Concomitant]
  3. ZYLORIC        (ALLOPURINOL)          TABLET, 100 MG [Concomitant]
  4. SELBEX           (TEPRENONE) [Concomitant]
  5. CARVEDILOL [Concomitant]
  6. BAYASPIRIN (ACETYLSALICYLIC ACID)               TABLET, 100 MG [Concomitant]
  7. OMEPRAL (OMEPRAZOLE)         TABLET, 10 MG [Concomitant]
  8. WARFARIN (WARFARIN POTASSIUM)          TABLET, 1 MG [Concomitant]

REACTIONS (11)
  - CARDIOGENIC SHOCK [None]
  - DECREASED APPETITE [None]
  - DEHYDRATION [None]
  - DIARRHOEA [None]
  - ELECTROLYTE IMBALANCE [None]
  - NO THERAPEUTIC RESPONSE [None]
  - RENAL FAILURE [None]
  - RESPIRATORY DISORDER [None]
  - VENTRICULAR TACHYCARDIA [None]
  - VIRAL INFECTION [None]
  - VOMITING [None]
